APPROVED DRUG PRODUCT: BRETYLIUM TOSYLATE
Active Ingredient: BRETYLIUM TOSYLATE
Strength: 50MG/ML
Dosage Form/Route: INJECTABLE;INJECTION
Application: A071153 | Product #001
Applicant: ASTRAZENECA LP
Approved: Aug 10, 1987 | RLD: No | RS: No | Type: DISCN